FAERS Safety Report 6150653-5 (Version None)
Quarter: 2009Q2

REPORT INFORMATION
  Report Type: 
  Country: None (occurrence: None)
  Receive Date: 20090408
  Receipt Date: 20090408
  Transmission Date: 20091009
  Serious: Yes (Hospitalization)
  Sender: FDA-Public Use
  Company Number: None

PATIENT
  Sex: Female
  Weight: 58.9676 kg

DRUGS (7)
  1. IXABEPILONE BMS [Suspect]
     Indication: BREAST CANCER
     Dosage: 13MG/M2 QW X 3 IV DRIP
     Route: 041
     Dates: start: 20081219, end: 20090223
  2. ADVIL [Concomitant]
  3. KEPPRA [Concomitant]
  4. PHENOBARBITAL [Concomitant]
  5. ZOMETA [Concomitant]
  6. MEGACE [Concomitant]
  7. MAGIC MOUTHWASH [Concomitant]

REACTIONS (2)
  - AGITATION [None]
  - CONFUSIONAL STATE [None]
